FAERS Safety Report 6989506-9 (Version None)
Quarter: 2010Q3

REPORT INFORMATION
  Report Type: 
  Country: None (occurrence: None)
  Receive Date: 20100916
  Receipt Date: 20100106
  Transmission Date: 20110219
  Serious: Yes (Other)
  Sender: FDA-Public Use
  Company Number: US-PFIZER INC-2009269342

PATIENT
  Sex: Male
  Weight: 192.74 kg

DRUGS (5)
  1. LYRICA [Suspect]
     Indication: BACK PAIN
     Dosage: 100 MG EVERY 6 HOURS
     Route: 048
     Dates: start: 20090701, end: 20090101
  2. LYRICA [Suspect]
     Indication: NEURALGIA
  3. AMBIEN [Concomitant]
     Dosage: 20MG AT BEDTIME
  4. PAXIL [Concomitant]
     Dosage: ONCE DAILY
  5. TRAZODONE [Concomitant]
     Dosage: 50MG AT BEDTIME

REACTIONS (2)
  - BLOOD GLUCOSE INCREASED [None]
  - SKIN ODOUR ABNORMAL [None]
